FAERS Safety Report 7079790-8 (Version None)
Quarter: 2010Q4

REPORT INFORMATION
  Report Type: 
  Country: None (occurrence: None)
  Receive Date: 20101102
  Receipt Date: 20101021
  Transmission Date: 20110411
  Serious: Yes (Other)
  Sender: FDA-Public Use
  Company Number: BR-PFIZER INC-2010133997

PATIENT
  Age: 65 Year
  Sex: Female
  Weight: 72 kg

DRUGS (4)
  1. LYRICA [Suspect]
     Indication: BACK PAIN
     Dosage: 75 MG, 1X/DAY
     Route: 048
     Dates: start: 20100901, end: 20100101
  2. LYRICA [Suspect]
     Indication: NECK PAIN
  3. METOPROLOL SUCCINATE [Concomitant]
     Indication: HYPERTENSION
     Dosage: 50MG
  4. CLORANA [Concomitant]
     Indication: HYPERTENSION
     Dosage: 25MG

REACTIONS (6)
  - BRADYPHRENIA [None]
  - DIZZINESS [None]
  - GENITAL HYPOAESTHESIA [None]
  - MONOPLEGIA [None]
  - NAUSEA [None]
  - VISUAL IMPAIRMENT [None]
